FAERS Safety Report 25600973 (Version 1)
Quarter: 2025Q3

REPORT INFORMATION
  Report Type: Spontaneous
  Country: US (occurrence: US)
  Receive Date: 20250724
  Receipt Date: 20250724
  Transmission Date: 20251021
  Serious: No
  Sender: AVERITAS
  Company Number: US-GRUNENTHAL-2025-110403

PATIENT
  Age: 62 Year
  Sex: Male
  Weight: 113.38 kg

DRUGS (7)
  1. QUTENZA [Suspect]
     Active Substance: CAPSAICIN
     Indication: Neuropathy peripheral
     Route: 061
     Dates: start: 20241209, end: 20241209
  2. QUTENZA [Suspect]
     Active Substance: CAPSAICIN
     Route: 061
     Dates: start: 20250310, end: 20250310
  3. QUTENZA [Suspect]
     Active Substance: CAPSAICIN
     Route: 061
     Dates: start: 20250613, end: 20250613
  4. OXYCODONE [Concomitant]
     Active Substance: OXYCODONE
     Indication: Arthralgia
     Dosage: 10 MILLIGRAM, 4/DAY
     Route: 065
  5. OXYCODONE [Concomitant]
     Active Substance: OXYCODONE
     Indication: Back pain
  6. OXYCODONE [Concomitant]
     Active Substance: OXYCODONE
     Indication: Neck pain
  7. UNSPECIFIED INGREDIENT [Concomitant]
     Active Substance: UNSPECIFIED INGREDIENT
     Indication: Analgesic therapy
     Route: 065

REACTIONS (4)
  - Application site pain [Recovered/Resolved]
  - Application site pain [Recovered/Resolved]
  - Application site pain [Recovered/Resolved]
  - Accidental exposure to product [Recovered/Resolved]

NARRATIVE: CASE EVENT DATE: 20241209
